FAERS Safety Report 6955732-8 (Version None)
Quarter: 2010Q3

REPORT INFORMATION
  Report Type: 
  Country: None (occurrence: None)
  Receive Date: 20100826
  Receipt Date: 20100826
  Transmission Date: 20110219
  Serious: No
  Sender: FDA-Public Use
  Company Number: None

PATIENT
  Sex: Female
  Weight: 63.6 kg

DRUGS (1)
  1. MIRENA [Suspect]
     Indication: CONTRACEPTION
     Dates: start: 20090901, end: 20100712

REACTIONS (4)
  - MENORRHAGIA [None]
  - MUSCLE SPASMS [None]
  - POLYMENORRHOEA [None]
  - UTERINE PERFORATION [None]
